FAERS Safety Report 9413165 (Version 1)
Quarter: 2013Q2

REPORT INFORMATION
  Report Type: Spontaneous
  Country: NL (occurrence: NL)
  Receive Date: 20130531
  Receipt Date: 20130531
  Transmission Date: 20140414
  Serious: Yes (Hospitalization)
  Sender: FDA-Public Use
  Company Number: NL-20130009

PATIENT
  Age: 54 Year
  Sex: Female

DRUGS (13)
  1. HEXABRIX 320 (IOXAGLIC ACID) UNKNOWN [Suspect]
     Indication: CORONARY ARTERY BYPASS
     Dosage: 200 ML (200 ML,1 IN 1 TOTAL)
     Route: 013
     Dates: start: 20130327, end: 20130327
  2. HEPARIN (HEPARIN)(HEPARIN) [Concomitant]
  3. LIDOCAINE (LIDOCAINE)(2%)(LIDOCAINE) [Concomitant]
  4. SODIUM CHLORIDE (SODIUM CHLORIDE)(SODIUM CHLORIDE) [Concomitant]
  5. MONOCEDOCARD (ISOSORBIDE MONONITRATE)(ISOSORBIDE MONONITRATE) [Concomitant]
  6. PLAVIX (CLOPIDOGREL)(CLOPIDOGREL) [Concomitant]
  7. ATORVASTATINE (ATORVASTATIN)(ATORVASTATIN) [Concomitant]
  8. METOPROLOL (METOPROLOL)(METOPROLOL) [Concomitant]
  9. COZAAR (LOSARTAN POTASSIUM)(LOSARTAN POTASSIUM) [Concomitant]
  10. PANTOZOL (PANTOPRAZOLE SODIUM SESQUIHYDRATE)(PANTOPRAZOLE SODIUM SESQUIHYDRATE) [Concomitant]
  11. NITROGLYCERIN (NITROGLYCERIN)(NITROGLYCERIN) [Concomitant]
  12. TRAMAL (TRAMADOL)(TRAMADOL) [Concomitant]
  13. PREDNISONE (PREDNISONE)(PREDNISONE) [Concomitant]

REACTIONS (3)
  - Diarrhoea [None]
  - Pyrexia [None]
  - Chills [None]
